FAERS Safety Report 4679818-6 (Version None)
Quarter: 2005Q2

REPORT INFORMATION
  Report Type: 
  Country: None (occurrence: None)
  Receive Date: 20050531
  Receipt Date: 20050517
  Transmission Date: 20051028
  Serious: Yes (Other)
  Sender: FDA-Public Use
  Company Number: B0382195A

PATIENT
  Age: 68 Year
  Sex: Male

DRUGS (2)
  1. AUGMENTIN '250' [Suspect]
     Indication: BIOPSY
  2. ANTICOAGULANT (ANTICOAGULANT)  (GENERIC) [Suspect]
     Indication: ATRIAL FIBRILLATION
     Dosage: ORAL
     Route: 048

REACTIONS (6)
  - DRUG INTERACTION [None]
  - ECCHYMOSIS [None]
  - HEPATITIS CHOLESTATIC [None]
  - HEPATOTOXICITY [None]
  - IMMUNE SYSTEM DISORDER [None]
  - OVERDOSE [None]
